FAERS Safety Report 14920540 (Version 3)
Quarter: 2018Q2

REPORT INFORMATION
  Report Type: Spontaneous
  Country: US (occurrence: JP)
  Receive Date: 20180521
  Receipt Date: 20180622
  Transmission Date: 20180711
  Serious: Yes (Death, Hospitalization, Other)
  Sender: FDA-Public Use
  Company Number: US-SUNOVION-2018SUN001951

PATIENT
  Age: 83 Year
  Sex: Male

DRUGS (10)
  1. KETOBUN A [Concomitant]
     Active Substance: ALLOPURINOL
     Indication: PRODUCT USED FOR UNKNOWN INDICATION
     Dosage: UNK
     Route: 065
  2. BAYASPIRIN [Concomitant]
     Active Substance: ASPIRIN
     Indication: PRODUCT USED FOR UNKNOWN INDICATION
     Dosage: UNK
     Route: 065
  3. ADALAT [Concomitant]
     Active Substance: NIFEDIPINE
     Indication: PRODUCT USED FOR UNKNOWN INDICATION
     Dosage: UNK
     Route: 065
  4. BEZATOL [Concomitant]
     Active Substance: BEZAFIBRATE
  5. DIOVAN [Suspect]
     Active Substance: VALSARTAN
     Indication: PRODUCT USED FOR UNKNOWN INDICATION
     Dosage: UNK
     Route: 048
  6. FUROSEMIDE. [Concomitant]
     Active Substance: FUROSEMIDE
     Indication: PRODUCT USED FOR UNKNOWN INDICATION
     Dosage: 20 MG, UNK
     Route: 048
     Dates: start: 201406
  7. LANDEL [Concomitant]
     Active Substance: UNSPECIFIED INGREDIENT
     Indication: PRODUCT USED FOR UNKNOWN INDICATION
     Dosage: UNK
     Route: 065
  8. BEZATOL - SLOW RELEASE [Concomitant]
     Active Substance: BEZAFIBRATE
     Indication: PRODUCT USED FOR UNKNOWN INDICATION
     Dosage: UNK
     Route: 065
  9. INDACATEROL [Suspect]
     Active Substance: INDACATEROL
     Indication: EMPHYSEMA
     Dosage: 150 UG, UNK
     Route: 055
     Dates: start: 201305, end: 201412
  10. INDACATEROL AND GLYCOPYRROLATE [Suspect]
     Active Substance: GLYCOPYRROLATE\INDACATEROL MALEATE
     Indication: EMPHYSEMA
     Dosage: 110/50 UG, UNK
     Route: 055
     Dates: start: 201412

REACTIONS (10)
  - Ventricular hypokinesia [Fatal]
  - Pancreatitis acute [Unknown]
  - Pneumonia [Not Recovered/Not Resolved]
  - Ventricular hypertrophy [Fatal]
  - Dehydration [Unknown]
  - Pulmonary oedema [Not Recovered/Not Resolved]
  - Cardiac failure chronic [Fatal]
  - Hypertension [Fatal]
  - Dyspnoea [Fatal]
  - Abdominal pain [Unknown]

NARRATIVE: CASE EVENT DATE: 20171207
